FAERS Safety Report 9632700 (Version 10)
Quarter: 2016Q4

REPORT INFORMATION
  Report Type: Spontaneous
  Country: US (occurrence: US)
  Receive Date: 20131018
  Receipt Date: 20161005
  Transmission Date: 20170207
  Serious: Yes (Hospitalization, Disabling, Other)
  Sender: FDA-Public Use
  Company Number: US-009507513-1008USA04179

PATIENT
  Sex: Male
  Weight: 74.83 kg

DRUGS (3)
  1. FOSAMAX [Suspect]
     Active Substance: ALENDRONATE SODIUM
     Indication: OSTEOPOROSIS
     Dosage: 10 MG, QD
     Route: 048
     Dates: start: 20000427, end: 200107
  2. ALENDRONATE SODIUM. [Suspect]
     Active Substance: ALENDRONATE SODIUM
     Indication: OSTEOPOROSIS
     Dosage: 70 MG, UNKNOWN
     Route: 048
     Dates: start: 2001, end: 2010
  3. FOSAMAX [Suspect]
     Active Substance: ALENDRONATE SODIUM
     Dosage: 70 MG, QW
     Route: 048
     Dates: start: 200201, end: 20091215

REACTIONS (57)
  - Femur fracture [Recovered/Resolved]
  - Tooth disorder [Unknown]
  - Gingivitis [Unknown]
  - Tooth disorder [Unknown]
  - Pain [Unknown]
  - Pollakiuria [Unknown]
  - Tibia fracture [Recovered/Resolved]
  - Osteonecrosis of jaw [Recovered/Resolved]
  - Femur fracture [Recovered/Resolved]
  - Foot fracture [Unknown]
  - Foot fracture [Recovering/Resolving]
  - Cataract [Unknown]
  - Ecchymosis [Unknown]
  - Blood glucose increased [Unknown]
  - Gait disturbance [Unknown]
  - Ankle fracture [Unknown]
  - Foot fracture [Unknown]
  - Arthralgia [Not Recovered/Not Resolved]
  - Sleep apnoea syndrome [Unknown]
  - Hypertension [Unknown]
  - Arthralgia [Unknown]
  - Weight fluctuation [Unknown]
  - Eye injury [Unknown]
  - Foot fracture [Unknown]
  - Retinal tear [Unknown]
  - Benign prostatic hyperplasia [Unknown]
  - Dysuria [Unknown]
  - Device failure [Unknown]
  - Lipoma [Unknown]
  - Sinusitis [Unknown]
  - Limb asymmetry [Unknown]
  - Joint effusion [Unknown]
  - Rib fracture [Unknown]
  - Headache [Unknown]
  - Amnesia [Unknown]
  - Sexual dysfunction [Unknown]
  - Erectile dysfunction [Unknown]
  - Intramedullary rod insertion [Recovered/Resolved]
  - Fall [Unknown]
  - Back pain [Not Recovered/Not Resolved]
  - Device failure [Unknown]
  - Depression [Not Recovered/Not Resolved]
  - Vitamin D increased [Unknown]
  - Radiculopathy [Unknown]
  - Insomnia [Unknown]
  - Vision blurred [Unknown]
  - Temperature intolerance [Unknown]
  - Joint stiffness [Unknown]
  - Rotator cuff repair [Unknown]
  - Fracture nonunion [Unknown]
  - Osteodystrophy [Unknown]
  - Osteoarthritis [Unknown]
  - Lower limb fracture [Unknown]
  - Ankle fracture [Unknown]
  - Intervertebral disc degeneration [Unknown]
  - Fatigue [Unknown]
  - Abdominal pain [Unknown]

NARRATIVE: CASE EVENT DATE: 20010209
